FAERS Safety Report 6977313-2 (Version None)
Quarter: 2010Q3

REPORT INFORMATION
  Report Type: 
  Country: None (occurrence: None)
  Receive Date: 20100910
  Receipt Date: 20100906
  Transmission Date: 20110219
  Serious: Yes (Death, Hospitalization)
  Sender: FDA-Public Use
  Company Number: IT-CELGENEUS-083-21880-10080140

PATIENT
  Sex: Male
  Weight: 63.5 kg

DRUGS (4)
  1. REVLIMID [Suspect]
     Indication: MULTIPLE MYELOMA
     Route: 048
     Dates: start: 20100715
  2. REVLIMID [Suspect]
     Route: 048
     Dates: start: 20100126
  3. DEXAMETHASONE [Concomitant]
     Indication: MULTIPLE MYELOMA
     Route: 048
     Dates: start: 20100225, end: 20100604
  4. DEXAMETHASONE [Concomitant]
     Route: 048
     Dates: start: 20100126, end: 20100224

REACTIONS (1)
  - SEPTIC SHOCK [None]
